FAERS Safety Report 25259287 (Version 1)
Quarter: 2025Q2

REPORT INFORMATION
  Report Type: Spontaneous
  Country: US (occurrence: None)
  Receive Date: 20250501
  Receipt Date: 20250501
  Transmission Date: 20250716
  Serious: Yes (Hospitalization)
  Sender: FDA-CTU
  Company Number: None

PATIENT
  Age: 58 Year
  Sex: Male
  Weight: 68.3 kg

DRUGS (4)
  1. FLUOROURACIL [Suspect]
     Active Substance: FLUOROURACIL
  2. LEUCOVORIN CALCIUM [Suspect]
     Active Substance: LEUCOVORIN CALCIUM
  3. NIVOLUMAB [Concomitant]
     Active Substance: NIVOLUMAB
  4. ELOXATIN [Suspect]
     Active Substance: OXALIPLATIN

REACTIONS (13)
  - Abdominal pain [None]
  - Failure to thrive [None]
  - Dehydration [None]
  - Constipation [None]
  - Sepsis [None]
  - Blood creatinine increased [None]
  - Bacteraemia [None]
  - Pneumonia [None]
  - Urinary tract infection [None]
  - Delirium [None]
  - Hallucination [None]
  - Confusional state [None]
  - Hypernatraemia [None]

NARRATIVE: CASE EVENT DATE: 20250421
